FAERS Safety Report 6791406-4 (Version None)
Quarter: 2010Q2

REPORT INFORMATION
  Report Type: 
  Country: None (occurrence: None)
  Receive Date: 20100621
  Receipt Date: 20100607
  Transmission Date: 20101027
  Serious: Yes (Hospitalization, Other)
  Sender: FDA-Public Use
  Company Number: WAES 1006USA01306

PATIENT
  Age: 67 Year
  Sex: Male

DRUGS (2)
  1. ZOCOR [Suspect]
     Indication: ACUTE CORONARY SYNDROME
     Dosage: 40 MG/DAILY
     Route: 048
     Dates: start: 20091204, end: 20100601
  2. PLACEBO (UNSPECIFIED) [Concomitant]
     Indication: ACUTE CORONARY SYNDROME
     Dosage: 1 TABLET / DAILY
     Route: 048
     Dates: start: 20091204, end: 20100601

REACTIONS (1)
  - GASTRIC CANCER [None]
